FAERS Safety Report 9327729 (Version 1)
Quarter: 2013Q2

REPORT INFORMATION
  Report Type: Spontaneous
  Country: US (occurrence: US)
  Receive Date: 20130604
  Receipt Date: 20130604
  Transmission Date: 20140414
  Serious: No
  Sender: FDA-Public Use
  Company Number: US-PFIZER INC-2013166977

PATIENT
  Age: 62 Year
  Sex: Female
  Weight: 68.03 kg

DRUGS (2)
  1. ADVIL [Suspect]
     Indication: ARTHRITIS
     Dosage: 200 MG, AS NEEDED
     Dates: start: 20130529
  2. ADVIL [Suspect]
     Indication: HEADACHE

REACTIONS (2)
  - Dyspepsia [Recovered/Resolved]
  - Feeling abnormal [Recovered/Resolved]
